FAERS Safety Report 25220670 (Version 1)
Quarter: 2025Q2

REPORT INFORMATION
  Report Type: Spontaneous
  Country: ES (occurrence: ES)
  Receive Date: 20250421
  Receipt Date: 20250421
  Transmission Date: 20250717
  Serious: Yes (Life-Threatening, Other)
  Sender: MYLAN
  Company Number: None

PATIENT
  Age: 38 Year
  Sex: Male
  Weight: 77 kg

DRUGS (5)
  1. FINASTERIDE [Suspect]
     Active Substance: FINASTERIDE
     Indication: Hair transplant
     Dosage: 5 MILLIGRAM, QD (5 MG FINASTERIDE DAILY FOR 7 MONTHS / MESOTHERAPY EVERY 3 MONTHS WITH DUTASTERIDE)
     Dates: start: 20240404, end: 20250206
  2. DUTASTERIDE [Suspect]
     Active Substance: DUTASTERIDE
     Indication: Hair transplant
  3. ESCITALOPRAM OXALATE [Concomitant]
     Active Substance: ESCITALOPRAM OXALATE
     Dosage: 15 MILLIGRAM, QD (1 TABLET OF 15 MG PER DAY)
     Dates: start: 20240902
  4. SERENOA REPENS WHOLE [Concomitant]
     Active Substance: SERENOA REPENS WHOLE
  5. MINOXIDIL [Concomitant]
     Active Substance: MINOXIDIL

REACTIONS (16)
  - Panic reaction [Not Recovered/Not Resolved]
  - Body temperature decreased [Unknown]
  - Suicidal ideation [Recovered/Resolved]
  - Chest pain [Unknown]
  - Anxiety [Unknown]
  - Muscle spasms [Unknown]
  - Back pain [Unknown]
  - Fatigue [Unknown]
  - Cognitive disorder [Unknown]
  - Brain fog [Unknown]
  - Amnesia [Unknown]
  - Depersonalisation/derealisation disorder [Unknown]
  - Sleep disorder [Unknown]
  - Night sweats [Unknown]
  - Tearfulness [Unknown]
  - Depression [Unknown]

NARRATIVE: CASE EVENT DATE: 20240424
